FAERS Safety Report 13031063 (Version 2)
Quarter: 2017Q1

REPORT INFORMATION
  Report Type: Spontaneous
  Country: US (occurrence: US)
  Receive Date: 20161215
  Receipt Date: 20170103
  Transmission Date: 20170428
  Serious: No
  Sender: FDA-Public Use
  Company Number: US-JNJFOC-20161213590

PATIENT
  Sex: Male
  Weight: 95.26 kg

DRUGS (2)
  1. STELARA [Suspect]
     Active Substance: USTEKINUMAB
     Indication: PSORIASIS
     Route: 058
     Dates: start: 20160913
  2. STELARA [Suspect]
     Active Substance: USTEKINUMAB
     Indication: PSORIASIS
     Route: 058
     Dates: start: 20160913

REACTIONS (6)
  - Skin exfoliation [Unknown]
  - Erythema [Unknown]
  - Skin disorder [Unknown]
  - Hepatic enzyme increased [Recovered/Resolved]
  - Pruritus [Unknown]
  - Transaminases increased [Unknown]

NARRATIVE: CASE EVENT DATE: 2016
